FAERS Safety Report 6312695-6 (Version None)
Quarter: 2009Q3

REPORT INFORMATION
  Report Type: 
  Country: None (occurrence: None)
  Receive Date: 20090814
  Receipt Date: 20090814
  Transmission Date: 20100115
  Serious: No
  Sender: FDA-Public Use
  Company Number: None

PATIENT
  Sex: Female
  Weight: 56.6996 kg

DRUGS (3)
  1. IBUPROFEN [Suspect]
     Indication: BACK PAIN
     Dosage: 800MG 3 TIMES DAILY PO
     Route: 048
     Dates: start: 20090720, end: 20090811
  2. IBUPROFEN [Suspect]
     Indication: HEADACHE
     Dosage: 800MG 3 TIMES DAILY PO
     Route: 048
     Dates: start: 20090720, end: 20090811
  3. IBUPROFEN [Suspect]
     Indication: MYALGIA
     Dosage: 800MG 3 TIMES DAILY PO
     Route: 048
     Dates: start: 20090720, end: 20090811

REACTIONS (2)
  - DRUG INEFFECTIVE [None]
  - PRODUCT SUBSTITUTION ISSUE [None]
